FAERS Safety Report 8766835 (Version 2)
Quarter: 2012Q4

REPORT INFORMATION
  Report Type: 
  Country: DE (occurrence: DE)
  Receive Date: 20120904
  Receipt Date: 20120910
  Transmission Date: 20130627
  Serious: Yes (Death, Hospitalization, Other)
  Sender: FDA-Public Use
  Company Number: DE-CELGENEUS-062-50794-12083294

PATIENT
  Age: 74 Year
  Sex: Male
  Weight: 79 kg

DRUGS (2)
  1. VIDAZA [Suspect]
     Indication: RAEB
     Route: 058
     Dates: start: 20120802, end: 20120810
  2. RED BLOOD CELLS [Concomitant]
     Indication: ANEMIA
     Route: 065

REACTIONS (5)
  - Pulmonary embolism [Fatal]
  - Pneumonia [Fatal]
  - General physical health deterioration [Unknown]
  - Thrombocytopenia [Unknown]
  - Renal function test abnormal [Unknown]
